FAERS Safety Report 18088829 (Version 1)
Quarter: 2020Q3

REPORT INFORMATION
  Report Type: Spontaneous
  Country: US (occurrence: US)
  Receive Date: 20200729
  Receipt Date: 20200729
  Transmission Date: 20201103
  Serious: Yes (Hospitalization)
  Sender: FDA-Public Use
  Company Number: US-PFIZER INC-2020285435

PATIENT
  Age: 66 Year
  Sex: Male
  Weight: 68.04 kg

DRUGS (2)
  1. BRAFTOVI [Suspect]
     Active Substance: ENCORAFENIB
     Dosage: 450 MG 3 CAPSULES LAST NIGHT
     Route: 048
     Dates: start: 202007
  2. BRAFTOVI [Suspect]
     Active Substance: ENCORAFENIB
     Indication: ANAPLASTIC THYROID CANCER
     Dosage: 450 MG, 1X/DAY
     Route: 048
     Dates: start: 20200721, end: 202007

REACTIONS (3)
  - Off label use [Unknown]
  - Pain in extremity [Not Recovered/Not Resolved]
  - Product use in unapproved indication [Unknown]

NARRATIVE: CASE EVENT DATE: 20200721
